FAERS Safety Report 22970574 (Version 10)
Quarter: 2023Q4

REPORT INFORMATION
  Report Type: Report from Study
  Country: US (occurrence: US)
  Receive Date: 20230922
  Receipt Date: 20231123
  Transmission Date: 20240110
  Serious: Yes (Hospitalization, Other)
  Sender: FDA-Public Use
  Company Number: US-SAREPTA THERAPEUTICS INC.-SRP2023-003784

PATIENT
  Age: 8 Year
  Sex: Male
  Weight: 44 kg

DRUGS (16)
  1. DELANDISTROGENE MOXEPARVOVEC [Suspect]
     Active Substance: DELANDISTROGENE MOXEPARVOVEC
     Indication: Duchenne muscular dystrophy
     Dosage: 460ML, SINGLE
     Route: 042
     Dates: start: 20230808, end: 20230808
  2. PLACEBO [Suspect]
     Active Substance: UNSPECIFIED INGREDIENT
     Indication: Duchenne muscular dystrophy
     Dosage: 410 MILLILITER, SINGLE, SALINE 0.9% SODIUM CHLORIDE SOLUTION
     Route: 042
     Dates: start: 20220726, end: 20220726
  3. PREDNISOLONE [Concomitant]
     Active Substance: PREDNISOLONE
     Indication: Duchenne muscular dystrophy
     Dosage: 19.8 MILLIGRAM, QD
     Route: 048
     Dates: start: 20210815, end: 20230917
  4. PREDNISOLONE [Concomitant]
     Active Substance: PREDNISOLONE
     Indication: Immunosuppression
     Dosage: 45 MILLIGRAM, QD
     Route: 048
     Dates: start: 20230807, end: 20230917
  5. PREDNISOLONE [Concomitant]
     Active Substance: PREDNISOLONE
     Indication: Hepatotoxicity
     Dosage: 42 MILLIGRAM, QD
     Route: 048
     Dates: start: 20220725, end: 20220924
  6. PREDNISOLONE [Concomitant]
     Active Substance: PREDNISOLONE
     Dosage: 10 MILLIGRAM, QD
     Route: 048
     Dates: start: 20220925, end: 20221001
  7. PREDNISOLONE [Concomitant]
     Active Substance: PREDNISOLONE
     Dosage: 5 MILLIGRAM, QD
     Route: 048
     Dates: start: 20221002, end: 20221008
  8. PREDNISOLONE [Concomitant]
     Active Substance: PREDNISOLONE
     Dosage: 90 MILLIGRAM, QD
     Route: 048
     Dates: start: 20230921, end: 20230921
  9. PREDNISOLONE [Concomitant]
     Active Substance: PREDNISOLONE
     Dosage: 90 MILLIGRAM, QD
     Route: 048
     Dates: start: 20230928, end: 20231004
  10. PREDNISOLONE [Concomitant]
     Active Substance: PREDNISOLONE
     Dosage: 45 MILLIGRAM, QD
     Route: 048
     Dates: start: 20231005, end: 20231011
  11. PREDNISOLONE [Concomitant]
     Active Substance: PREDNISOLONE
     Dosage: 30 MILLIGRAM, QD
     Route: 048
     Dates: start: 20231012, end: 20231018
  12. PREDNISOLONE [Concomitant]
     Active Substance: PREDNISOLONE
     Dosage: 19.8 MILLIGRAM, QD
     Route: 048
     Dates: start: 20230919
  13. PREDNISOLONE [Concomitant]
     Active Substance: PREDNISOLONE
     Dosage: 15 MILLIGRAM, QD
     Route: 048
     Dates: start: 20231019, end: 20231025
  14. PREDNISOLONE [Concomitant]
     Active Substance: PREDNISOLONE
     Dosage: 9 MILLIGRAM, QD
     Route: 048
     Dates: start: 20231026, end: 20231101
  15. PREDNISOLONE [Concomitant]
     Active Substance: PREDNISOLONE
     Dosage: 5 MILLIGRAM, QD
     Route: 048
     Dates: start: 20231102, end: 20231108
  16. PRILOSEC [Concomitant]
     Active Substance: OMEPRAZOLE MAGNESIUM
     Indication: Gastrooesophageal reflux disease
     Dosage: 20 MILLIGRAM, QD
     Route: 048
     Dates: start: 20230605

REACTIONS (2)
  - Hepatotoxicity [Recovered/Resolved]
  - Troponin I increased [Recovered/Resolved]

NARRATIVE: CASE EVENT DATE: 20230912
